FAERS Safety Report 4903071-9 (Version None)
Quarter: 2006Q1

REPORT INFORMATION
  Report Type: 
  Country: None (occurrence: None)
  Receive Date: 20060207
  Receipt Date: 20051226
  Transmission Date: 20060701
  Serious: Yes (Other)
  Sender: FDA-Public Use
  Company Number: PHBS2005CL19011

PATIENT
  Age: 59 Year
  Sex: Female

DRUGS (2)
  1. STALEVO 100 [Suspect]
     Dosage: 150 MG, QID
     Route: 048
     Dates: start: 20051201
  2. PRAMIPEXOLE DIHYDROCHLORIDE [Concomitant]
     Dosage: 1 MG, TID

REACTIONS (2)
  - BRONCHIAL OBSTRUCTION [None]
  - HEADACHE [None]
